FAERS Safety Report 8976375 (Version 3)
Quarter: 2013Q2

REPORT INFORMATION
  Report Type: Spontaneous
  Country: HU (occurrence: HU)
  Receive Date: 20121220
  Receipt Date: 20130430
  Transmission Date: 20140414
  Serious: Yes (Other)
  Sender: FDA-Public Use
  Company Number: HU-ELI_LILLY_AND_COMPANY-HU201212004860

PATIENT
  Age: 73 Year
  Sex: Female

DRUGS (13)
  1. FORSTEO [Suspect]
     Indication: OSTEOPOROSIS
     Dosage: 20UG/DAILY
     Route: 058
     Dates: start: 201201, end: 20121128
  2. ALPHA D3 [Concomitant]
     Dosage: UNK, UNKNOWN
  3. SYNCUMAR [Concomitant]
     Dosage: UNK, UNKNOWN
  4. CONCOR [Concomitant]
     Dosage: UNK, UNKNOWN
  5. ESTULIC [Concomitant]
     Dosage: UNK, UNKNOWN
  6. EZETROL [Concomitant]
     Dosage: UNK, UNKNOWN
  7. PANANGIN [Concomitant]
     Dosage: UNK, UNKNOWN
  8. VEROSPIRON [Concomitant]
     Dosage: UNK, UNKNOWN
  9. KALDYUM [Concomitant]
     Dosage: UNK, UNKNOWN
  10. RUTASCORBIN [Concomitant]
     Dosage: UNK, UNKNOWN
  11. FERROGRAD FOLIC [Concomitant]
     Dosage: UNK, UNKNOWN
  12. ADALAT [Concomitant]
     Dosage: 30MG, NIGHTLY
  13. CALCIUM [Concomitant]
     Dosage: UNK

REACTIONS (3)
  - Atrial fibrillation [Recovered/Resolved]
  - Angina pectoris [Recovered/Resolved]
  - Stomatitis [Recovered/Resolved]
